FAERS Safety Report 7441762-9 (Version None)
Quarter: 2011Q2

REPORT INFORMATION
  Report Type: 
  Country: None (occurrence: None)
  Receive Date: 20110428
  Receipt Date: 20110419
  Transmission Date: 20111010
  Serious: Yes (Death, Hospitalization)
  Sender: FDA-Public Use
  Company Number: MX-BRISTOL-MYERS SQUIBB COMPANY-15689581

PATIENT
  Age: 62 Year
  Sex: Male
  Weight: 68 kg

DRUGS (2)
  1. COAPROVEL TABS 150MG/12.5MG [Suspect]
     Indication: HYPERTENSION
     Dosage: 1 DF:1 TAB/24HRS
     Route: 048
     Dates: end: 20100201
  2. XATRAL [Suspect]
     Indication: URINARY INCONTINENCE
     Dosage: 1 DF:1 TAB FORMULATION:10MG, PHYSC PRES 20 MG
     Route: 048
     Dates: start: 20080101, end: 20100201

REACTIONS (3)
  - URINARY INCONTINENCE [None]
  - COLORECTAL CANCER METASTATIC [None]
  - MEDICATION ERROR [None]
